FAERS Safety Report 14706543 (Version 2)
Quarter: 2018Q2

REPORT INFORMATION
  Report Type: Report from Study
  Country: BR (occurrence: BR)
  Receive Date: 20180402
  Receipt Date: 20180411
  Transmission Date: 20180711
  Serious: Yes (Hospitalization, Other)
  Sender: FDA-Public Use
  Company Number: BR-ALXN-A201802701AA

PATIENT
  Age: 53 Year
  Sex: Female

DRUGS (2)
  1. SOLIRIS [Suspect]
     Active Substance: ECULIZUMAB
     Dosage: 1200 MG, Q2W
     Route: 042
     Dates: start: 20151023, end: 20180216
  2. SOLIRIS [Suspect]
     Active Substance: ECULIZUMAB
     Indication: ATYPICAL HAEMOLYTIC URAEMIC SYNDROME
     Dosage: 900 MG, QW
     Route: 042
     Dates: start: 20150925, end: 20151016

REACTIONS (11)
  - Pleural effusion [Unknown]
  - Viral myocarditis [Not Recovered/Not Resolved]
  - Hypersensitivity [Recovered/Resolved]
  - Inappropriate schedule of drug administration [Unknown]
  - Mouth haemorrhage [Recovered/Resolved]
  - Blood creatinine increased [Unknown]
  - Ejection fraction decreased [Unknown]
  - Cardiac failure congestive [Unknown]
  - Asthenia [Recovered/Resolved]
  - Dyspnoea [Recovered/Resolved]
  - Cardiomyopathy [Not Recovered/Not Resolved]

NARRATIVE: CASE EVENT DATE: 201802
